FAERS Safety Report 22343797 (Version 1)
Quarter: 2023Q2

REPORT INFORMATION
  Report Type: Report from Study
  Country: US (occurrence: US)
  Receive Date: 20230519
  Receipt Date: 20230519
  Transmission Date: 20230721
  Serious: Yes (Hospitalization)
  Sender: FDA-Public Use
  Company Number: US-GILEAD-2023-0628801

PATIENT
  Age: 71 Year
  Sex: Female

DRUGS (1)
  1. SACITUZUMAB GOVITECAN-HZIY [Suspect]
     Active Substance: SACITUZUMAB GOVITECAN-HZIY
     Indication: Breast cancer
     Dosage: 411 MG, ON DAYS 1 + 8 OF A CONTINUOUS 21 DAY CYCLE
     Route: 042

REACTIONS (3)
  - Drug ineffective [Not Recovered/Not Resolved]
  - Hospice care [Unknown]
  - Condition aggravated [Not Recovered/Not Resolved]
